FAERS Safety Report 4999573-X (Version None)
Quarter: 2006Q2

REPORT INFORMATION
  Report Type: 
  Country: None (occurrence: None)
  Receive Date: 20060511
  Receipt Date: 20060418
  Transmission Date: 20061013
  Serious: Yes (Other)
  Sender: FDA-Public Use
  Company Number: PHEH2006US05115

PATIENT
  Age: 71 Year
  Sex: Female

DRUGS (16)
  1. ALIMTA [Suspect]
     Indication: LUNG CANCER METASTATIC
     Dosage: 790 MG, UNK
     Dates: start: 20051116, end: 20060223
  2. ALIMTA [Suspect]
     Dosage: 800 MG, UNK
     Dates: start: 20060106
  3. ZOMETA [Suspect]
     Indication: LUNG CANCER METASTATIC
     Dosage: UNK, Q MONTH
     Dates: start: 20051116, end: 20060119
  4. TAXOL [Concomitant]
     Indication: LUNG NEOPLASM MALIGNANT
     Dosage: 280 MG, UNK
     Dates: start: 20050818
  5. CARBOPLATIN [Concomitant]
     Indication: LUNG NEOPLASM MALIGNANT
     Dosage: 650 MG, UNK
  6. PROTONIX [Concomitant]
     Indication: GASTROOESOPHAGEAL REFLUX DISEASE
     Dosage: UNK, UNK
     Dates: start: 20051116
  7. VICODIN [Concomitant]
     Dosage: 5/500  Q 4 HR PRN
  8. LYRICA [Concomitant]
     Dosage: 50 MG, QHS
     Route: 048
  9. AMBIEN [Concomitant]
     Dosage: 5 MG, PRN, HS
  10. VITAMIN B-12 [Concomitant]
     Dosage: 1000 MEQ, QD
  11. FOLIC ACID [Concomitant]
     Dosage: 1 MG, QD
  12. CORAL CALCIUM [Concomitant]
     Dosage: UNK, QD
  13. LIPITOR [Concomitant]
     Dosage: 20 MG, UNK
  14. FOSAMAX [Concomitant]
     Indication: OSTEOPOROSIS
     Dates: start: 20060331
  15. NEURONTIN [Concomitant]
  16. ZOLOFT [Concomitant]

REACTIONS (22)
  - ABDOMINAL DISCOMFORT [None]
  - ANAEMIA [None]
  - ARTHRALGIA [None]
  - BLOOD POTASSIUM INCREASED [None]
  - BURNING SENSATION [None]
  - CARBOHYDRATE ANTIGEN 19-9 INCREASED [None]
  - CHILLS [None]
  - COUGH [None]
  - DECREASED APPETITE [None]
  - HYPERHIDROSIS [None]
  - MALIGNANT NEOPLASM PROGRESSION [None]
  - MASS [None]
  - MUSCLE TWITCHING [None]
  - NEUROPATHY [None]
  - PAIN [None]
  - PARAESTHESIA [None]
  - RALES [None]
  - SACRAL PAIN [None]
  - SPONDYLOLISTHESIS [None]
  - TEMPERATURE INTOLERANCE [None]
  - TREMOR [None]
  - WEIGHT DECREASED [None]
